FAERS Safety Report 13404634 (Version 2)
Quarter: 2017Q2

REPORT INFORMATION
  Report Type: Spontaneous
  Country: US (occurrence: US)
  Receive Date: 20170405
  Receipt Date: 20170428
  Transmission Date: 20170830
  Serious: No
  Sender: FDA-Public Use
  Company Number: PHEH2017US008866

PATIENT
  Sex: Female
  Weight: 63.5 kg

DRUGS (1)
  1. EXELON PATCH [Suspect]
     Active Substance: RIVASTIGMINE
     Indication: AMNESIA
     Dosage: 9.5 MG, QD
     Route: 062
     Dates: start: 20170319

REACTIONS (2)
  - Application site erythema [Not Recovered/Not Resolved]
  - Dermatitis contact [Unknown]
